FAERS Safety Report 7888347-8 (Version None)
Quarter: 2011Q4

REPORT INFORMATION
  Report Type: 
  Country: None (occurrence: None)
  Receive Date: 20111103
  Receipt Date: 20111020
  Transmission Date: 20120403
  Serious: Yes (Other)
  Sender: FDA-Public Use
  Company Number: PHHY2011DE48670

PATIENT
  Sex: Male

DRUGS (1)
  1. TASIGNA [Suspect]
     Indication: CHRONIC MYELOID LEUKAEMIA
     Dosage: 600 MG, PER DAY
     Route: 048
     Dates: start: 20101101

REACTIONS (7)
  - MUSCULAR WEAKNESS [None]
  - CEREBRAL HAEMANGIOMA [None]
  - BULBAR PALSY [None]
  - CENTRAL NERVOUS SYSTEM LESION [None]
  - DIZZINESS [None]
  - ANTIACETYLCHOLINE RECEPTOR ANTIBODY [None]
  - MUSCLE SPASMS [None]
